FAERS Safety Report 5956948-X (Version None)
Quarter: 2008Q4

REPORT INFORMATION
  Report Type: 
  Country: None (occurrence: None)
  Receive Date: 20081118
  Receipt Date: 20081114
  Transmission Date: 20090506
  Serious: Yes (Hospitalization, Other)
  Sender: FDA-Public Use
  Company Number: US-ASTRAZENECA-2008UW18112

PATIENT
  Age: 646 Month
  Sex: Female
  Weight: 123.4 kg

DRUGS (12)
  1. CRESTOR [Suspect]
     Indication: BLOOD CHOLESTEROL INCREASED
     Route: 048
  2. CRESTOR [Suspect]
     Route: 048
  3. VICODIN [Concomitant]
  4. NEXIUM [Concomitant]
     Route: 048
  5. NORVASC [Concomitant]
  6. LASIX [Concomitant]
  7. COUMADIN [Concomitant]
  8. SINGULAIR [Concomitant]
  9. EFFEXOR [Concomitant]
  10. ADVAIR DISKUS 100/50 [Concomitant]
  11. ZOPINEX [Concomitant]
  12. OXYGEN [Concomitant]

REACTIONS (5)
  - BLOOD CARBON MONOXIDE [None]
  - BLOOD CREATININE INCREASED [None]
  - DIALYSIS [None]
  - PULMONARY OEDEMA [None]
  - RENAL FAILURE [None]
